FAERS Safety Report 10068530 (Version 2)
Quarter: 2014Q2

REPORT INFORMATION
  Report Type: Report from Study
  Country: JP (occurrence: JP)
  Receive Date: 20140409
  Receipt Date: 20140409
  Transmission Date: 20141212
  Serious: Yes (Death, Other)
  Sender: FDA-Public Use
  Company Number: PHHY2009JP36848

PATIENT
  Age: 81 Year
  Sex: Male
  Weight: 70 kg

DRUGS (14)
  1. ICL670A [Suspect]
     Indication: IRON OVERLOAD
     Dosage: 500 MG, UNK
     Dates: start: 20080731, end: 20081001
  2. ICL670A [Suspect]
     Indication: REFRACTORY CYTOPENIA WITH UNILINEAGE DYSPLASIA
     Dosage: 750 MG, UNK
     Route: 048
     Dates: start: 20081002, end: 20081023
  3. ICL670A [Suspect]
     Dosage: 1000 MG, UNK
     Route: 048
     Dates: start: 20081024, end: 20081218
  4. DESFERAL [Suspect]
     Indication: MYELODYSPLASTIC SYNDROME
     Route: 030
     Dates: start: 20080401, end: 20080717
  5. DESFERAL [Suspect]
     Dosage: UNK
     Route: 030
     Dates: start: 20090126, end: 20090207
  6. ZYLORIC [Concomitant]
     Dosage: 200 MG, UNK
     Route: 048
     Dates: start: 20080731, end: 20081224
  7. PRIMOBOLAN [Concomitant]
     Dosage: 20 MG, UNK
     Route: 048
     Dates: start: 20080731, end: 20081224
  8. CIPROXAN [Concomitant]
     Dosage: 600 MG, UNK
     Route: 048
     Dates: start: 20080918, end: 20080924
  9. CRAVIT [Concomitant]
     Dosage: 300 MG, UNK
     Route: 048
     Dates: start: 20080925
  10. MAGMITT [Concomitant]
     Dosage: 1500 MG, UNK
     Route: 048
     Dates: start: 20080925
  11. NITROPEN [Concomitant]
     Indication: CHEST PAIN
     Dosage: 1 DF, UNK
     Route: 048
     Dates: start: 20080927
  12. OPSO DAINIPPON [Concomitant]
     Indication: PAIN
     Dosage: 5 MG, UNK
     Route: 048
     Dates: start: 20081211
  13. PURSENNID [Concomitant]
     Dosage: 24 MG, UNK
     Route: 048
     Dates: start: 20081227, end: 20090102
  14. BISOLVON [Concomitant]
     Dosage: 3 DF, UNK
     Route: 048
     Dates: start: 20090120

REACTIONS (4)
  - Pneumonia [Fatal]
  - Condition aggravated [Unknown]
  - Serum ferritin increased [Unknown]
  - Oedema peripheral [Recovered/Resolved]
